FAERS Safety Report 7965236-1 (Version None)
Quarter: 2011Q4

REPORT INFORMATION
  Report Type: 
  Country: None (occurrence: None)
  Receive Date: 20111206
  Receipt Date: 20111206
  Transmission Date: 20120403
  Serious: Yes (Death)
  Sender: FDA-Public Use
  Company Number: None

PATIENT
  Sex: Female
  Weight: 58.514 kg

DRUGS (4)
  1. CYTOXAN [Suspect]
     Indication: BREAST CANCER
     Dosage: 1074MG - 4296MG - IV
     Route: 042
     Dates: start: 20011119, end: 20020121
  2. ADRIAMYCIN PFS [Suspect]
     Indication: BREAST CANCER
     Dosage: 107MG -  CUM DOSE 428MG - IV
     Route: 042
     Dates: start: 20011119, end: 20020121
  3. TAXOTERE [Concomitant]
  4. ARIMIDEX [Concomitant]

REACTIONS (1)
  - CARDIAC FAILURE CONGESTIVE [None]
